FAERS Safety Report 9474554 (Version 2)
Quarter: 2013Q3

REPORT INFORMATION
  Report Type: Spontaneous
  Country: PH (occurrence: PH)
  Receive Date: 20130823
  Receipt Date: 20130912
  Transmission Date: 20140515
  Serious: Yes (Other)
  Sender: FDA-Public Use
  Company Number: PH-B.I. PHARMACEUTICALS,INC./RIDGEFIELD-2013-BI-25948YA

PATIENT
  Age: 50 Year
  Sex: Male

DRUGS (2)
  1. HARNAL [Suspect]
     Indication: BENIGN PROSTATIC HYPERPLASIA
     Dosage: 400 MCG
     Route: 048
     Dates: start: 20130813, end: 20130815
  2. HERBAL MEDICINE (HERBAL EXTRACT) [Concomitant]

REACTIONS (2)
  - Rash erythematous [Recovered/Resolved]
  - Petechiae [Recovered/Resolved]
